FAERS Safety Report 17596719 (Version 1)
Quarter: 2020Q1

REPORT INFORMATION
  Report Type: Spontaneous
  Country: CA (occurrence: CA)
  Receive Date: 20200330
  Receipt Date: 20200330
  Transmission Date: 20200409
  Serious: Yes (Other)
  Sender: FDA-Public Use
  Company Number: CA-ORION CORPORATION ORION PHARMA-TREX2019-2870

PATIENT
  Age: 64 Year
  Sex: Female

DRUGS (2)
  1. METHOTREXATE (TRADE NAME UNKNOWN) [Suspect]
     Active Substance: METHOTREXATE
     Indication: PSORIATIC ARTHROPATHY
     Route: 065
  2. TENORMIN [Concomitant]
     Active Substance: ATENOLOL
     Route: 065

REACTIONS (7)
  - Decreased immune responsiveness [Unknown]
  - Herpes zoster [Unknown]
  - Abdominal pain upper [Unknown]
  - Psoriatic arthropathy [Unknown]
  - Reflux gastritis [Unknown]
  - Pneumonia [Unknown]
  - Abdominal discomfort [Unknown]

NARRATIVE: CASE EVENT DATE: 201907
